FAERS Safety Report 24633080 (Version 3)
Quarter: 2025Q1

REPORT INFORMATION
  Report Type: Report from Study
  Country: US (occurrence: US)
  Receive Date: 20241118
  Receipt Date: 20250127
  Transmission Date: 20250409
  Serious: Yes (Other)
  Sender: UCB
  Company Number: US-UCBSA-2024058903

PATIENT
  Age: 83 Year
  Sex: Male

DRUGS (1)
  1. ROZANOLIXIZUMAB [Suspect]
     Active Substance: ROZANOLIXIZUMAB
     Indication: Myasthenia gravis
     Dosage: UNK, WEEKLY (QW)
     Dates: start: 20241030

REACTIONS (3)
  - Myasthenia gravis [Not Recovered/Not Resolved]
  - Pneumonia [Not Recovered/Not Resolved]
  - Drug ineffective [Unknown]

NARRATIVE: CASE EVENT DATE: 20241030
